FAERS Safety Report 6515925-0 (Version None)
Quarter: 2009Q4

REPORT INFORMATION
  Report Type: 
  Country: None (occurrence: None)
  Receive Date: 20091223
  Receipt Date: 20090130
  Transmission Date: 20100525
  Serious: No
  Sender: FDA-Public Use
  Company Number: US-ABBOTT-08P-163-0489622-00

PATIENT
  Age: 73 Year
  Sex: Male
  Weight: 81.72 kg

DRUGS (5)
  1. LUPRON DEPOT [Suspect]
     Indication: PROSTATE CANCER
     Dates: start: 20080901
  2. DEXAMETHASONE TAB [Concomitant]
     Indication: MULTIPLE MYELOMA
  3. UNKNOWN [Concomitant]
     Indication: MULTIPLE MYELOMA
     Dosage: TAKES WITH DEXAMETHASONE
  4. CHEMOTHERAPY [Concomitant]
     Indication: MULTIPLE MYELOMA
     Dosage: UNKNOWN
  5. VITAMINS [Concomitant]
     Indication: VITAMIN SUPPLEMENTATION
     Dosage: UNKNOWN
     Route: 048

REACTIONS (3)
  - ARTHRALGIA [None]
  - FEELING ABNORMAL [None]
  - HOT FLUSH [None]
